FAERS Safety Report 7381075-7 (Version None)
Quarter: 2011Q1

REPORT INFORMATION
  Report Type: 
  Country: None (occurrence: None)
  Receive Date: 20110329
  Receipt Date: 20110323
  Transmission Date: 20110831
  Serious: No
  Sender: FDA-Public Use
  Company Number: US-TEVA-273094USA

PATIENT
  Age: 81 Year
  Sex: Female

DRUGS (1)
  1. ALBUTEROL SULFATE AUTOHALER [Suspect]
     Indication: ASTHMA
     Route: 055
     Dates: start: 20110318, end: 20110322

REACTIONS (3)
  - DIZZINESS [None]
  - INCREASED UPPER AIRWAY SECRETION [None]
  - COUGH [None]
